FAERS Safety Report 19987860 (Version 1)
Quarter: 2021Q4

REPORT INFORMATION
  Report Type: Spontaneous
  Country: IT (occurrence: IT)
  Receive Date: 20211023
  Receipt Date: 20211023
  Transmission Date: 20220303
  Serious: Yes (Other)
  Sender: FDA-Public Use
  Company Number: IT-ABBVIE-21K-083-4131599-00

PATIENT
  Age: 35 Year
  Sex: Male

DRUGS (3)
  1. VALPROATE SODIUM [Suspect]
     Active Substance: VALPROATE SODIUM
     Indication: Bipolar disorder
     Route: 048
     Dates: start: 20180118, end: 20180405
  2. DELORAZEPAM [Suspect]
     Active Substance: DELORAZEPAM
     Indication: Psychotic disorder
     Dosage: PRN (ASNECESSARY)
     Route: 048
     Dates: start: 20180118, end: 20180405
  3. RISPERIDONE [Suspect]
     Active Substance: RISPERIDONE
     Indication: Behaviour disorder
     Route: 042
     Dates: start: 20180208, end: 20180405

REACTIONS (1)
  - Hyperprolactinaemia [Recovered/Resolved]

NARRATIVE: CASE EVENT DATE: 20180405
